FAERS Safety Report 5660013-9 (Version None)
Quarter: 2008Q1

REPORT INFORMATION
  Report Type: 
  Country: None (occurrence: None)
  Receive Date: 20080311
  Receipt Date: 20070820
  Transmission Date: 20080703
  Serious: No
  Sender: FDA-Public Use
  Company Number: US-BAYER-200712692BCC

PATIENT
  Age: 84 Year
  Sex: Female
  Weight: 79 kg

DRUGS (4)
  1. ALEVE [Suspect]
     Indication: ARTHRALGIA
     Dosage: TOTAL DAILY DOSE: 220 MG  UNIT DOSE: 220 MG
     Route: 048
     Dates: start: 20070701
  2. WATER PILL-GENERIC [Concomitant]
  3. PREMARIN [Concomitant]
  4. TOPROL-XL [Concomitant]

REACTIONS (1)
  - DIZZINESS [None]
